FAERS Safety Report 24454110 (Version 2)
Quarter: 2024Q4

REPORT INFORMATION
  Report Type: Spontaneous
  Country: US (occurrence: US)
  Receive Date: 20241017
  Receipt Date: 20241018
  Transmission Date: 20250115
  Serious: No
  Sender: ROCHE
  Company Number: US-ROCHE-3464752

PATIENT
  Age: 36 Year
  Sex: Male

DRUGS (4)
  1. RITUXIMAB [Suspect]
     Active Substance: RITUXIMAB
     Indication: Nephrotic syndrome
     Route: 065
  2. PREDNISONE [Concomitant]
     Active Substance: PREDNISONE
  3. TACROLIMUS [Concomitant]
     Active Substance: TACROLIMUS
  4. SPARSENTAN [Concomitant]
     Active Substance: SPARSENTAN

REACTIONS (2)
  - Off label use [Unknown]
  - No adverse event [Unknown]
